FAERS Safety Report 7843614-9 (Version None)
Quarter: 2011Q4

REPORT INFORMATION
  Report Type: 
  Country: None (occurrence: None)
  Receive Date: 20111025
  Receipt Date: 20111021
  Transmission Date: 20120403
  Serious: Yes (Death)
  Sender: FDA-Public Use
  Company Number: CA-ROCHE-1006510

PATIENT
  Sex: Male
  Weight: 72.64 kg

DRUGS (7)
  1. XELODA [Suspect]
     Indication: GASTROINTESTINAL CARCINOMA
     Route: 048
  2. OXYCONTIN [Concomitant]
  3. LYRICA [Concomitant]
  4. NABILONE [Concomitant]
  5. OXYCODONE HCL [Concomitant]
  6. LEVAQUIN [Concomitant]
  7. RANITIDINE [Concomitant]

REACTIONS (1)
  - DEATH [None]
